FAERS Safety Report 10017734 (Version 1)
Quarter: 2014Q1

REPORT INFORMATION
  Report Type: Spontaneous
  Country: US (occurrence: US)
  Receive Date: 20140318
  Receipt Date: 20140318
  Transmission Date: 20141002
  Serious: No
  Sender: FDA-Public Use
  Company Number: US-BRISTOL-MYERS SQUIBB COMPANY-18732982

PATIENT
  Sex: 0

DRUGS (1)
  1. ERBITUX [Suspect]
     Dosage: TAKEN ONE DOSE
     Route: 042

REACTIONS (4)
  - Eye pain [Unknown]
  - Ocular hyperaemia [Unknown]
  - Vision blurred [Unknown]
  - Eyelid margin crusting [Unknown]
